FAERS Safety Report 8918788 (Version 3)
Quarter: 2013Q1

REPORT INFORMATION
  Report Type: Spontaneous
  Country: BR (occurrence: BR)
  Receive Date: 20121120
  Receipt Date: 20130208
  Transmission Date: 20140127
  Serious: Yes (Death, Hospitalization)
  Sender: FDA-Public Use
  Company Number: BR-GENZYME-CERZ-1002710

PATIENT
  Sex: Male
  Weight: 45 kg

DRUGS (1)
  1. CEREZYME [Suspect]
     Indication: GAUCHER^S DISEASE
     Dosage: 45 U/KG, Q2W
     Route: 042
     Dates: start: 19980901

REACTIONS (1)
  - Haemorrhage [Fatal]
